FAERS Safety Report 8635516 (Version 2)
Quarter: 2012Q4

REPORT INFORMATION
  Report Type: Spontaneous
  Country: CA (occurrence: None)
  Receive Date: 20120612
  Receipt Date: 20120928
  Transmission Date: 20130627
  Serious: Yes (Disabling)
  Sender: FDA-Public Use
  Company Number: 2012-002029

PATIENT
  Age: 52 Year
  Sex: Female
  Weight: 63.5 kg

DRUGS (7)
  1. ACTONEL [Suspect]
     Indication: OSTEOPENIA
     Route: 048
     Dates: start: 2006
  2. COLACE (DOCUSATE SODIUM) [Concomitant]
  3. DILANTIN [Concomitant]
  4. LACTULOSE [Concomitant]
  5. MYSOLINE [Concomitant]
  6. SENOKOT (SENNA ALEXANDRINA) [Concomitant]
  7. VITAMIN D (COLECALCIFEROL) [Concomitant]

REACTIONS (6)
  - Dysphagia [None]
  - Gingival discolouration [None]
  - Gingival disorder [None]
  - Gingival erythema [None]
  - Pain in jaw [None]
  - Tooth abscess [None]
